FAERS Safety Report 17043408 (Version 1)
Quarter: 2019Q4

REPORT INFORMATION
  Report Type: Spontaneous
  Country: US (occurrence: US)
  Receive Date: 20191017
  Receipt Date: 20191017
  Transmission Date: 20200122
  Serious: No
  Sender: FDA-Public Use
  Company Number: None

PATIENT
  Age: 80 Year
  Sex: Female
  Weight: 49.9 kg

DRUGS (7)
  1. PREDNISONE. [Suspect]
     Active Substance: PREDNISONE
     Indication: PRODUCT USED FOR UNKNOWN INDICATION
     Dosage: ?          QUANTITY:2 DF DOSAGE FORM;?
     Route: 048
     Dates: start: 20190910, end: 20190924
  2. VITAMIN B-12 2500MG [Concomitant]
  3. AMLODIPINE BESYLATE 10MG [Concomitant]
     Active Substance: AMLODIPINE BESYLATE
  4. OMEPRAZOLE 40MG [Concomitant]
     Active Substance: OMEPRAZOLE
  5. CHOLESTYRAMINE 46MG [Concomitant]
  6. GAS-X [Concomitant]
     Active Substance: DIMETHICONE
  7. ATENOLOL 25MG [Concomitant]
     Active Substance: ATENOLOL

REACTIONS (7)
  - Pain [None]
  - Restlessness [None]
  - Thinking abnormal [None]
  - Muscle disorder [None]
  - Diarrhoea [None]
  - Peripheral swelling [None]
  - Skin burning sensation [None]

NARRATIVE: CASE EVENT DATE: 20190910
